FAERS Safety Report 16308445 (Version 3)
Quarter: 2019Q3

REPORT INFORMATION
  Report Type: Spontaneous
  Country: FR (occurrence: FR)
  Receive Date: 20190514
  Receipt Date: 20190711
  Transmission Date: 20191004
  Serious: Yes (Other)
  Sender: FDA-Public Use
  Company Number: FR-BAYER-2019-094924

PATIENT
  Age: 43 Year
  Sex: Female

DRUGS (3)
  1. KYLEENA [Suspect]
     Active Substance: LEVONORGESTREL
     Indication: CONTRACEPTION
     Dosage: 17.5 MCG/24HR, CONT
     Route: 015
     Dates: start: 20181118
  2. THYROSOL [Concomitant]
     Indication: THYROIDITIS
  3. KEPPRA [Concomitant]
     Active Substance: LEVETIRACETAM
     Dosage: 0.5 DF, BID
     Route: 048

REACTIONS (4)
  - Meningioma [Recovering/Resolving]
  - Device issue [None]
  - Motor dysfunction [Recovering/Resolving]
  - Sensory disturbance [Recovering/Resolving]

NARRATIVE: CASE EVENT DATE: 20190128
